FAERS Safety Report 12438283 (Version 1)
Quarter: 2016Q2

REPORT INFORMATION
  Report Type: Spontaneous
  Country: FR (occurrence: FR)
  Receive Date: 20160606
  Receipt Date: 20160606
  Transmission Date: 20160815
  Serious: Yes (Hospitalization)
  Sender: FDA-Public Use
  Company Number: FR-PFIZER INC-2016284939

PATIENT
  Age: 72 Year
  Sex: Female

DRUGS (11)
  1. MAPROTILINE [Concomitant]
     Active Substance: MAPROTILINE
     Dosage: UNK
  2. AMOXICILLIN CLAVULANIC ACID [Concomitant]
     Active Substance: AMOXICILLIN\CLAVULANIC ACID
     Dosage: UNK
  3. METFORMIN [Concomitant]
     Active Substance: METFORMIN HYDROCHLORIDE
     Dosage: UNK
  4. LIRAGLUTIDE [Suspect]
     Active Substance: LIRAGLUTIDE
     Indication: TYPE 2 DIABETES MELLITUS
     Dosage: 1.2 MG, DAILY
     Route: 058
  5. ATENOLOL. [Concomitant]
     Active Substance: ATENOLOL
     Dosage: UNK
  6. RAMIPRIL. [Suspect]
     Active Substance: RAMIPRIL
     Dosage: 10 MG, UNK
  7. AMLODIPINE [Concomitant]
     Active Substance: AMLODIPINE BESYLATE
     Dosage: UNK
  8. ATORVASTATIN [Concomitant]
     Active Substance: ATORVASTATIN
     Dosage: UNK
  9. HYDROCHLOROTHIAZIDE. [Suspect]
     Active Substance: HYDROCHLOROTHIAZIDE
     Dosage: 25 MG, UNK
  10. CLOPIDOGREL [Concomitant]
     Active Substance: CLOPIDOGREL BISULFATE
     Dosage: UNK
  11. LOXAPINE. [Concomitant]
     Active Substance: LOXAPINE
     Dosage: UNK

REACTIONS (11)
  - Decreased appetite [Recovered/Resolved]
  - Dehydration [Recovering/Resolving]
  - Somnolence [Recovering/Resolving]
  - Blood lactic acid increased [Recovering/Resolving]
  - Acute kidney injury [Recovering/Resolving]
  - Hypernatriuria [Recovering/Resolving]
  - Blood potassium increased [Recovering/Resolving]
  - Blood pH decreased [Recovering/Resolving]
  - Blood bicarbonate decreased [Recovering/Resolving]
  - Condition aggravated [Recovered/Resolved]
  - Hypotension [Recovering/Resolving]
